FAERS Safety Report 4328331-4 (Version None)
Quarter: 2004Q1

REPORT INFORMATION
  Report Type: 
  Country: None (occurrence: None)
  Receive Date: 20040331
  Receipt Date: 20031022
  Transmission Date: 20041129
  Serious: Yes (Life-Threatening)
  Sender: FDA-Public Use
  Company Number: PHBS2003JP11691

PATIENT
  Age: 17 Year
  Sex: Male
  Weight: 43 kg

DRUGS (5)
  1. ZYLORIC ^FAES^ [Concomitant]
  2. LASIX [Suspect]
     Dosage: 60 MG/DAY
     Route: 048
     Dates: start: 20030821
  3. ROCALTROL [Concomitant]
     Dosage: 0.5 UG/D
     Route: 048
     Dates: start: 20030821
  4. NEORAL [Suspect]
     Indication: NEPHROTIC SYNDROME
     Dosage: 100 MG/D
     Route: 048
     Dates: start: 20030810, end: 20030830
  5. PREDONINE [Suspect]
     Indication: NEPHROTIC SYNDROME
     Dosage: 60 MG/D
     Route: 048
     Dates: start: 20030810

REACTIONS (6)
  - CEREBRAL INFARCTION [None]
  - DEEP VEIN THROMBOSIS [None]
  - DEPRESSED LEVEL OF CONSCIOUSNESS [None]
  - NEUROLOGICAL SYMPTOM [None]
  - TONIC CONVULSION [None]
  - TOXIC INDUCED ENCEPHALOPATHY [None]
